FAERS Safety Report 16873573 (Version 1)
Quarter: 2019Q4

REPORT INFORMATION
  Report Type: Spontaneous
  Country: US (occurrence: US)
  Receive Date: 20191001
  Receipt Date: 20191001
  Transmission Date: 20200122
  Serious: Yes (Other)
  Sender: FDA-Public Use
  Company Number: PHEH2019US039675

PATIENT
  Sex: Female

DRUGS (1)
  1. NEOMYCIN+POLY B SULFATE+ HYDROCORT [Suspect]
     Active Substance: HYDROCORTISONE\NEOMYCIN SULFATE\POLYMYXIN B SULFATE
     Indication: SINUSITIS
     Dosage: UNK
     Route: 065

REACTIONS (4)
  - Deafness unilateral [Unknown]
  - Hypoacusis [Unknown]
  - Product expiration date issue [Unknown]
  - Ear swelling [Unknown]
